FAERS Safety Report 7989911-8 (Version None)
Quarter: 2011Q4

REPORT INFORMATION
  Report Type: 
  Country: None (occurrence: None)
  Receive Date: 20111219
  Receipt Date: 20110512
  Transmission Date: 20120403
  Serious: No
  Sender: FDA-Public Use
  Company Number: US-ASTRAZENECA-2011SE28511

PATIENT
  Age: 45 Year
  Sex: Female

DRUGS (1)
  1. CRESTOR [Suspect]
     Route: 048

REACTIONS (6)
  - FATIGUE [None]
  - PALPITATIONS [None]
  - FEELING JITTERY [None]
  - ANXIETY [None]
  - CRYING [None]
  - ASTHENIA [None]
